FAERS Safety Report 21742058 (Version 1)
Quarter: 2022Q4

REPORT INFORMATION
  Report Type: Spontaneous
  Country: ES (occurrence: ES)
  Receive Date: 20221216
  Receipt Date: 20221216
  Transmission Date: 20230113
  Serious: Yes (Death)
  Sender: FDA-Public Use
  Company Number: None

PATIENT
  Age: 86 Year
  Sex: Male

DRUGS (1)
  1. AMOXICILLIN\CLAVULANIC ACID [Suspect]
     Active Substance: AMOXICILLIN\CLAVULANIC ACID
     Indication: Aspiration
     Dosage: DURATION : 3 DAYS
     Route: 065
     Dates: start: 20220614, end: 20220616

REACTIONS (1)
  - Tubulointerstitial nephritis [Fatal]

NARRATIVE: CASE EVENT DATE: 20220616
